FAERS Safety Report 16910862 (Version 1)
Quarter: 2019Q4

REPORT INFORMATION
  Report Type: Spontaneous
  Country: US (occurrence: US)
  Receive Date: 20191012
  Receipt Date: 20191012
  Transmission Date: 20200122
  Serious: No
  Sender: FDA-Public Use
  Company Number: US-BION-008141

PATIENT
  Sex: Female

DRUGS (2)
  1. PROGESTERONE UNKNOWN CAPSULE 100 MG [Suspect]
     Active Substance: PROGESTERONE
     Indication: MENOPAUSAL SYMPTOMS
     Dosage: STRENGTH: 100 MG
     Dates: start: 201904
  2. DIVIGEL [Suspect]
     Active Substance: ESTRADIOL
     Indication: MENOPAUSAL SYMPTOMS
     Dates: start: 201904

REACTIONS (2)
  - Dyspepsia [Unknown]
  - Dry throat [Unknown]
